FAERS Safety Report 4550121-8 (Version None)
Quarter: 2005Q1

REPORT INFORMATION
  Report Type: 
  Country: None (occurrence: None)
  Receive Date: 20050110
  Receipt Date: 20041228
  Transmission Date: 20050727
  Serious: Yes (Other)
  Sender: FDA-Public Use
  Company Number: 200416343BCC

PATIENT
  Age: 31 Year
  Sex: Female
  Weight: 53.5244 kg

DRUGS (1)
  1. ALEVE [Suspect]
     Indication: BACK PAIN
     Dosage: 220-440 MG, QD, ORAL
     Route: 048
     Dates: start: 20041101, end: 20041107

REACTIONS (2)
  - GALLBLADDER DISORDER [None]
  - PAIN [None]
